FAERS Safety Report 4522228-2 (Version None)
Quarter: 2004Q4

REPORT INFORMATION
  Report Type: 
  Country: None (occurrence: None)
  Receive Date: 20041207
  Receipt Date: 20041117
  Transmission Date: 20050328
  Serious: Yes (Hospitalization, Other)
  Sender: FDA-Public Use
  Company Number: US_0411108294

PATIENT
  Sex: Female

DRUGS (2)
  1. HUMULIN N [Suspect]
  2. HUMULIN R [Suspect]

REACTIONS (8)
  - CAROTID ARTERY DISSECTION [None]
  - CATARACT [None]
  - EYE DISORDER [None]
  - GALLBLADDER OPERATION [None]
  - MACULAR DEGENERATION [None]
  - OVARIAN CANCER [None]
  - RENAL FAILURE [None]
  - THYROID DISORDER [None]
